FAERS Safety Report 11283329 (Version 1)
Quarter: 2015Q3

REPORT INFORMATION
  Report Type: Spontaneous
  Country: DE (occurrence: DE)
  Receive Date: 20150720
  Receipt Date: 20150720
  Transmission Date: 20151125
  Serious: Yes (Hospitalization)
  Sender: FDA-Public Use
  Company Number: DE-ASTRAZENECA-2015SE68616

PATIENT
  Age: 22 Year
  Sex: Female
  Weight: 83 kg

DRUGS (3)
  1. XEPLION [Concomitant]
     Active Substance: PALIPERIDONE PALMITATE
     Indication: SCHIZOPHRENIA, DISORGANISED TYPE
     Route: 030
     Dates: start: 201412
  2. QUETIAPIN PROLONG [Suspect]
     Active Substance: QUETIAPINE
     Indication: SCHIZOPHRENIA, DISORGANISED TYPE
     Route: 048
     Dates: start: 20150102, end: 20150325
  3. LORAZEPAM. [Concomitant]
     Active Substance: LORAZEPAM
     Route: 048
     Dates: start: 201412, end: 20150311

REACTIONS (8)
  - Hepatic enzyme increased [Unknown]
  - Electrocardiogram P wave abnormal [None]
  - Arrhythmia supraventricular [Recovered/Resolved]
  - Electrocardiogram change [Recovered/Resolved]
  - Nodal rhythm [None]
  - Aspartate aminotransferase increased [None]
  - Alanine aminotransferase increased [None]
  - Electrocardiogram PQ interval shortened [None]

NARRATIVE: CASE EVENT DATE: 20150325
